FAERS Safety Report 14100436 (Version 1)
Quarter: 2017Q4

REPORT INFORMATION
  Report Type: Spontaneous
  Country: US (occurrence: US)
  Receive Date: 20171017
  Receipt Date: 20171017
  Transmission Date: 20180321
  Serious: No
  Sender: FDA-Public Use
  Company Number: US-LANNETT COMPANY, INC.-US-2017LAN000843

PATIENT

DRUGS (2)
  1. BUTALBITAL/ASPIRIN/CAFFEINE/CODEINE PHOS [Suspect]
     Active Substance: ASPIRIN\BUTALBITAL\CAFFEINE\CODEINE PHOSPHATE
     Indication: HEADACHE
  2. BUTALBITAL/ASPIRIN/CAFFEINE/CODEINE PHOS [Suspect]
     Active Substance: ASPIRIN\BUTALBITAL\CAFFEINE\CODEINE PHOSPHATE
     Indication: MIGRAINE
     Dosage: UNK, PRN
     Route: 048
     Dates: start: 2016

REACTIONS (3)
  - Oropharyngeal pain [Not Recovered/Not Resolved]
  - Dyspepsia [Not Recovered/Not Resolved]
  - Drug ineffective [Not Recovered/Not Resolved]
